FAERS Safety Report 6554564-2 (Version None)
Quarter: 2010Q1

REPORT INFORMATION
  Report Type: 
  Country: None (occurrence: None)
  Receive Date: 20100127
  Receipt Date: 20100121
  Transmission Date: 20100710
  Serious: Yes (Death, Life-Threatening, Other)
  Sender: FDA-Public Use
  Company Number: PHEH2010US00724

PATIENT
  Sex: Male
  Weight: 84.354 kg

DRUGS (6)
  1. TASIGNA [Suspect]
     Indication: CHRONIC MYELOID LEUKAEMIA
     Dosage: 400 MG, BID
     Route: 048
  2. ALLOPURINOL [Concomitant]
     Dosage: 300 MG, QD
     Route: 048
  3. WELLBUTRIN SR [Concomitant]
     Dosage: 150 MG, QD
  4. OXYCODONE [Concomitant]
     Dosage: 5 MG, PRN
     Route: 048
  5. REGLAN [Concomitant]
     Dosage: 20 MG, BID
     Route: 048
  6. FLOMAX [Concomitant]
     Dosage: .4 MG, QD

REACTIONS (6)
  - BLOOD GLUCOSE DECREASED [None]
  - CALCULUS URETERIC [None]
  - CHRONIC MYELOID LEUKAEMIA [None]
  - DEATH [None]
  - PLATELET COUNT INCREASED [None]
  - WHITE BLOOD CELL COUNT INCREASED [None]
